FAERS Safety Report 8224021-6 (Version None)
Quarter: 2012Q1

REPORT INFORMATION
  Report Type: 
  Country: None (occurrence: None)
  Receive Date: 20120320
  Receipt Date: 20120320
  Transmission Date: 20120608
  Serious: Yes (Hospitalization)
  Sender: FDA-Public Use
  Company Number: None

PATIENT
  Sex: Female
  Weight: 38.4 kg

DRUGS (20)
  1. AMICAN [Concomitant]
  2. ATIVAN [Concomitant]
  3. CALCIUM CHLORIDE [Concomitant]
  4. EPINEPHRINE [Concomitant]
  5. OCTEOLIDE [Concomitant]
  6. DAUNORUBICIN HCL [Suspect]
     Dosage: 402 MG
  7. DOBUTAMINE HCL [Concomitant]
  8. FENTANYL [Concomitant]
  9. INSULIN [Concomitant]
  10. MILRINONE [Concomitant]
  11. MORPHINE [Concomitant]
  12. SODIUM BICARBONATE [Concomitant]
  13. VERSED [Concomitant]
  14. ETOPOSIDE [Suspect]
     Dosage: 2325 MG
  15. CYTARABINE [Suspect]
     Dosage: 28468 MG
  16. MITOXANTRONE HYDROCHLORIDE [Suspect]
     Dosage: 60 MG
  17. HEPARIN [Concomitant]
  18. LASIX [Concomitant]
  19. POTASSIUM [Concomitant]
  20. VASOPRESSIN [Concomitant]

REACTIONS (21)
  - SUBDURAL HAEMORRHAGE [None]
  - RESPIRATORY DISTRESS [None]
  - BLOOD TRIGLYCERIDES INCREASED [None]
  - SOFT TISSUE DISORDER [None]
  - ESCHERICHIA TEST POSITIVE [None]
  - CYTOMEGALOVIRUS VIRAEMIA [None]
  - CARDIOGENIC SHOCK [None]
  - GRAND MAL CONVULSION [None]
  - SERUM FERRITIN INCREASED [None]
  - PYREXIA [None]
  - SKIN LESION [None]
  - ABDOMINAL PAIN LOWER [None]
  - CAECITIS [None]
  - CARDIOMYOPATHY [None]
  - SOFT TISSUE NECROSIS [None]
  - HAEMATOCHEZIA [None]
  - EJECTION FRACTION DECREASED [None]
  - BONE MARROW FAILURE [None]
  - ENTEROCOCCAL INFECTION [None]
  - DIARRHOEA [None]
  - CONTINUOUS HAEMODIAFILTRATION [None]
